FAERS Safety Report 25111985 (Version 1)
Quarter: 2025Q1

REPORT INFORMATION
  Report Type: Spontaneous
  Country: US (occurrence: None)
  Receive Date: 20250321
  Receipt Date: 20250321
  Transmission Date: 20250409
  Serious: Yes (Other)
  Sender: FDA-CTU
  Company Number: None

PATIENT
  Age: 76 Year
  Sex: Female
  Weight: 72 kg

DRUGS (11)
  1. BRIMONIDINE TARTRATE [Suspect]
     Active Substance: BRIMONIDINE TARTRATE
     Indication: Glaucoma
     Route: 047
     Dates: start: 20230531, end: 20250301
  2. levothyhyroxine [Concomitant]
  3. LATANOPROST [Concomitant]
     Active Substance: LATANOPROST
  4. DORZOLAMIDE [Concomitant]
     Active Substance: DORZOLAMIDE
  5. Real mushrooms 5 Defenders [Concomitant]
  6. Ergo [Concomitant]
  7. Tremella + Lions Mane [Concomitant]
  8. VITAMIN B COMPLEX [Concomitant]
     Active Substance: CYANOCOBALAMIN\DEXPANTHENOL\NIACINAMIDE\PYRIDOXINE HYDROCHLORIDE\RIBOFLAVIN 5^-PHOSPHATE SODIUM\THIA
  9. Tart Cherry [Concomitant]
  10. UBIQUINOL [Concomitant]
     Active Substance: UBIQUINOL
  11. Super Omega EPA [Concomitant]

REACTIONS (3)
  - Diplopia [None]
  - Swollen tongue [None]
  - Dry eye [None]

NARRATIVE: CASE EVENT DATE: 20241004
